FAERS Safety Report 21898079 (Version 1)
Quarter: 2023Q1

REPORT INFORMATION
  Report Type: Spontaneous
  Country: US (occurrence: None)
  Receive Date: 20230120
  Receipt Date: 20230120
  Transmission Date: 20230418
  Serious: No
  Sender: FDA-Public Use
  Company Number: None

PATIENT
  Age: 31 Year
  Sex: Female
  Weight: 51.75 kg

DRUGS (4)
  1. CAPLYTA [Suspect]
     Active Substance: LUMATEPERONE
     Indication: Bipolar disorder
     Dosage: FREQUENCY : AT BEDTIME;?
     Route: 048
     Dates: start: 20230111
  2. SEROQUEL [Concomitant]
     Active Substance: QUETIAPINE FUMARATE
  3. LAMOTRIGINE [Concomitant]
     Active Substance: LAMOTRIGINE
  4. ADDERALL XR [Concomitant]
     Active Substance: AMPHETAMINE ASPARTATE\AMPHETAMINE SULFATE\DEXTROAMPHETAMINE SACCHARATE\DEXTROAMPHETAMINE SULFATE

REACTIONS (21)
  - Feeling hot [None]
  - Peripheral swelling [None]
  - Peripheral swelling [None]
  - Burning sensation [None]
  - Pain in extremity [None]
  - Gait disturbance [None]
  - Cold sweat [None]
  - Restlessness [None]
  - Insomnia [None]
  - Muscle tightness [None]
  - Dry mouth [None]
  - Thirst [None]
  - Headache [None]
  - Nasal congestion [None]
  - Somnolence [None]
  - Constipation [None]
  - Dysphagia [None]
  - Paranoia [None]
  - Delusion [None]
  - Hallucination [None]
  - Dizziness [None]

NARRATIVE: CASE EVENT DATE: 20230112
